APPROVED DRUG PRODUCT: SOTALOL HYDROCHLORIDE
Active Ingredient: SOTALOL HYDROCHLORIDE
Strength: 240MG
Dosage Form/Route: TABLET;ORAL
Application: A075366 | Product #004
Applicant: UPSHER SMITH LABORATORIES LLC
Approved: May 1, 2000 | RLD: No | RS: No | Type: DISCN